FAERS Safety Report 15502894 (Version 1)
Quarter: 2018Q4

REPORT INFORMATION
  Report Type: Report from Study
  Country: US (occurrence: US)
  Receive Date: 20181016
  Receipt Date: 20181016
  Transmission Date: 20190205
  Serious: No
  Sender: FDA-Public Use
  Company Number: US-AMGEN INC.-USASL2018118802

PATIENT
  Age: 78 Year
  Sex: Male
  Weight: 92.97 kg

DRUGS (4)
  1. AIMOVIG [Suspect]
     Active Substance: ERENUMAB-AOOE
     Dosage: 140 MG, UNK
     Route: 065
     Dates: start: 201809
  2. AMITRIPTYLINE [Concomitant]
     Active Substance: AMITRIPTYLINE
     Dosage: UNK
  3. AIMOVIG [Suspect]
     Active Substance: ERENUMAB-AOOE
     Indication: MIGRAINE PROPHYLAXIS
     Dosage: 70 MG, QMO
     Route: 065
     Dates: start: 20180711
  4. REMERON [Concomitant]
     Active Substance: MIRTAZAPINE
     Indication: MIGRAINE
     Dosage: UNK
     Route: 065
     Dates: start: 2018

REACTIONS (2)
  - Drug effect incomplete [Unknown]
  - Migraine [Unknown]

NARRATIVE: CASE EVENT DATE: 201807
